FAERS Safety Report 4801500-2 (Version None)
Quarter: 2005Q4

REPORT INFORMATION
  Report Type: 
  Country: None (occurrence: None)
  Receive Date: 20051011
  Receipt Date: 20050927
  Transmission Date: 20060501
  Serious: Yes (Other)
  Sender: FDA-Public Use
  Company Number: 2005134809

PATIENT
  Age: 51 Year
  Sex: Female
  Weight: 53.978 kg

DRUGS (3)
  1. CELEBREX [Suspect]
     Indication: PAIN
     Dosage: ORAL
     Route: 048
  2. ANTIHYPERTENSIVES (ANTIHYPERTENSIVES) [Concomitant]
  3. ALL OTHER THERAPEUTIC PRODUCTS (ALL OTHER THERAPEUTIC PRODUCTS) [Concomitant]

REACTIONS (5)
  - ECONOMIC PROBLEM [None]
  - OSTEOARTHRITIS [None]
  - PAIN IN EXTREMITY [None]
  - PATELLA FRACTURE [None]
  - TREATMENT NONCOMPLIANCE [None]
